FAERS Safety Report 11507085 (Version 1)
Quarter: 2015Q3

REPORT INFORMATION
  Report Type: Spontaneous
  Country: US (occurrence: None)
  Receive Date: 20150914
  Receipt Date: 20150914
  Transmission Date: 20151125
  Serious: Yes (Other)
  Sender: FDA-Public Use
  Company Number: None

PATIENT
  Age: 28 Year
  Sex: Female
  Weight: 61.24 kg

DRUGS (1)
  1. MIRENA [Suspect]
     Active Substance: LEVONORGESTREL
     Dates: start: 20141217

REACTIONS (5)
  - Alopecia [None]
  - Vaginal discharge [None]
  - Abdominal pain lower [None]
  - Vaginal odour [None]
  - Hair growth abnormal [None]
